FAERS Safety Report 21083058 (Version 4)
Quarter: 2022Q4

REPORT INFORMATION
  Report Type: Spontaneous
  Country: US (occurrence: US)
  Receive Date: 20220714
  Receipt Date: 20221104
  Transmission Date: 20230113
  Serious: No
  Sender: FDA-Public Use
  Company Number: US-NOVARTISTESTPH-NVSC2022US159141

PATIENT
  Sex: Female

DRUGS (1)
  1. COSENTYX [Suspect]
     Active Substance: SECUKINUMAB
     Indication: Product used for unknown indication
     Dosage: 150 MG, QMO (EVERY 28 DAYS)
     Route: 065

REACTIONS (4)
  - Device issue [Unknown]
  - Injection site bruising [Unknown]
  - Device delivery system issue [Unknown]
  - Drug dose omission by device [Unknown]
